FAERS Safety Report 7877478-4 (Version None)
Quarter: 2011Q4

REPORT INFORMATION
  Report Type: 
  Country: None (occurrence: None)
  Receive Date: 20111031
  Receipt Date: 20111028
  Transmission Date: 20120403
  Serious: Yes (Other)
  Sender: FDA-Public Use
  Company Number: US-PFIZER INC-2011164918

PATIENT
  Sex: Male
  Weight: 61.224 kg

DRUGS (4)
  1. ACETYLSALICYLIC ACID [Concomitant]
     Dosage: 81 MG, UNK
  2. DILANTIN [Suspect]
     Indication: EPILEPSY
     Dosage: 100 MG, 3X/DAY
     Route: 048
     Dates: start: 19641101
  3. DILANTIN [Suspect]
     Dosage: 400 MG PER DAY
     Route: 048
  4. DILANTIN [Suspect]
     Dosage: UNK
     Route: 048

REACTIONS (4)
  - INSOMNIA [None]
  - TREMOR [None]
  - CONVULSION [None]
  - DRUG LEVEL DECREASED [None]
